FAERS Safety Report 8060921-8 (Version None)
Quarter: 2012Q1

REPORT INFORMATION
  Report Type: 
  Country: None (occurrence: None)
  Receive Date: 20120120
  Receipt Date: 20110321
  Transmission Date: 20120608
  Serious: No
  Sender: FDA-Public Use
  Company Number: US-ALLERGAN-1103992US

PATIENT
  Age: 79 Year
  Sex: Female

DRUGS (3)
  1. RESTASIS [Suspect]
     Indication: DRY EYE
     Dosage: 1 UNK, UNK
     Route: 047
     Dates: start: 20101230
  2. ALPHAGAN P [Concomitant]
     Indication: GLAUCOMA
     Dosage: UNK
     Route: 047
  3. LUMIGAN [Concomitant]
     Indication: GLAUCOMA
     Dosage: UNK

REACTIONS (2)
  - WRONG TECHNIQUE IN DRUG USAGE PROCESS [None]
  - OCULAR HYPERAEMIA [None]
